FAERS Safety Report 5744048-3 (Version None)
Quarter: 2008Q2

REPORT INFORMATION
  Report Type: 
  Country: None (occurrence: None)
  Receive Date: 20080516
  Receipt Date: 20080516
  Transmission Date: 20081010
  Serious: Yes (Hospitalization)
  Sender: FDA-Public Use
  Company Number: None

PATIENT
  Sex: Male
  Weight: 29.9 kg

DRUGS (2)
  1. NITROUS OXIDE [Suspect]
     Indication: ENDOSCOPY
     Dosage: X1
     Dates: start: 20080408, end: 20080408
  2. NITROUS OXIDE [Suspect]
     Indication: EOSINOPHILIC OESOPHAGITIS
     Dosage: X1
     Dates: start: 20080408, end: 20080408

REACTIONS (6)
  - GAIT DISTURBANCE [None]
  - HYPOAESTHESIA [None]
  - NEUROLOGICAL EXAMINATION ABNORMAL [None]
  - NEUROPATHY PERIPHERAL [None]
  - SENSORY LOSS [None]
  - VITAMIN B12 DECREASED [None]
